FAERS Safety Report 7473076-5 (Version None)
Quarter: 2011Q2

REPORT INFORMATION
  Report Type: 
  Country: None (occurrence: None)
  Receive Date: 20110511
  Receipt Date: 20110428
  Transmission Date: 20111010
  Serious: Yes (Other)
  Sender: FDA-Public Use
  Company Number: US-ELI_LILLY_AND_COMPANY-US201105000438

PATIENT
  Age: 56 Year
  Sex: Female

DRUGS (2)
  1. CYMBALTA [Suspect]
     Indication: DEPRESSION
     Dosage: 90 MG, UNK
     Dates: start: 20090101
  2. CYMBALTA [Suspect]
     Dosage: 60 MG, UNK

REACTIONS (4)
  - DRUG WITHDRAWAL SYNDROME [None]
  - SUICIDAL IDEATION [None]
  - HYPERHIDROSIS [None]
  - BLOOD PRESSURE INCREASED [None]
